FAERS Safety Report 6204311-9 (Version None)
Quarter: 2009Q2

REPORT INFORMATION
  Report Type: 
  Country: None (occurrence: None)
  Receive Date: 20090521
  Receipt Date: 20090513
  Transmission Date: 20091009
  Serious: Yes (Hospitalization, Other)
  Sender: FDA-Public Use
  Company Number: A-CH2009-25053

PATIENT
  Age: 62 Year
  Sex: Male
  Weight: 107 kg

DRUGS (11)
  1. TRACLEER [Suspect]
     Indication: PULMONARY ARTERIAL HYPERTENSION
     Dosage: 125 MG, BID, ORAL; 62.5 MG, BID, ORAL
     Route: 048
     Dates: start: 20080812, end: 20080911
  2. TRACLEER [Suspect]
     Indication: PULMONARY ARTERIAL HYPERTENSION
     Dosage: 125 MG, BID, ORAL; 62.5 MG, BID, ORAL
     Route: 048
     Dates: start: 20080912, end: 20081005
  3. TRACLEER [Suspect]
     Indication: PULMONARY ARTERIAL HYPERTENSION
     Dosage: 125 MG, BID, ORAL; 62.5 MG, BID, ORAL
     Route: 048
     Dates: start: 20081016, end: 20081016
  4. SPIRONOLACTONE [Concomitant]
  5. HYDROCHLOROTHIAZIDE [Concomitant]
  6. AMIODARONE HCL [Concomitant]
  7. CANDESARTAN CILEXETIL [Concomitant]
  8. ALLOPURINOL [Concomitant]
  9. CARVEDILOL [Concomitant]
  10. FUROSEMIDE [Concomitant]
  11. BISOPROLOL FUMARATE [Concomitant]

REACTIONS (3)
  - GENERALISED OEDEMA [None]
  - RENAL FAILURE ACUTE [None]
  - WEIGHT INCREASED [None]
